FAERS Safety Report 8132412-7 (Version None)
Quarter: 2012Q1

REPORT INFORMATION
  Report Type: 
  Country: None (occurrence: None)
  Receive Date: 20120213
  Receipt Date: 20120201
  Transmission Date: 20120608
  Serious: Yes (Hospitalization, Other)
  Sender: FDA-Public Use
  Company Number: US-ELI_LILLY_AND_COMPANY-US201108000323

PATIENT
  Sex: Female

DRUGS (20)
  1. FORTEO [Suspect]
     Dosage: 20 UG, QD
     Route: 065
  2. NEXIUM [Concomitant]
     Dosage: UNK, QD
  3. FORTEO [Suspect]
     Indication: OSTEOPOROSIS
     Dosage: 20 UG, QD
     Route: 065
  4. ALLOPURINOL [Concomitant]
  5. DIGOXIN [Concomitant]
  6. PANTOPRAZOLE [Concomitant]
  7. POTASSIUM [Concomitant]
  8. CARISOPRODOL [Concomitant]
  9. XANAX [Concomitant]
     Dosage: UNK, QD
  10. LEVOTHYROXINE SODIUM [Concomitant]
  11. HYDROCODONE [Concomitant]
  12. FORTEO [Suspect]
     Dosage: 20 UG, QD
     Route: 065
     Dates: end: 20110801
  13. PLAVIX [Concomitant]
  14. FORTEO [Suspect]
     Dosage: 20 UG, QD
     Route: 065
  15. FORTEO [Suspect]
     Dosage: 20 UG, QD
     Route: 065
     Dates: start: 20111109
  16. ISOSORBIDE MONONITRATE [Concomitant]
  17. PREDNISONE TAB [Concomitant]
  18. ROFLUMILAST [Concomitant]
  19. VITAMIN TAB [Concomitant]
  20. LASIX [Concomitant]
     Dosage: UNK, QD

REACTIONS (12)
  - HEAD INJURY [None]
  - PHARYNGEAL OEDEMA [None]
  - HOSPITALISATION [None]
  - PNEUMONIA [None]
  - MALAISE [None]
  - INTENTIONAL DRUG MISUSE [None]
  - BLOOD PRESSURE DECREASED [None]
  - DRUG DOSE OMISSION [None]
  - CARDIAC FAILURE CONGESTIVE [None]
  - FALL [None]
  - CLAVICLE FRACTURE [None]
  - BLOOD TEST ABNORMAL [None]
